FAERS Safety Report 17988626 (Version 3)
Quarter: 2020Q3

REPORT INFORMATION
  Report Type: Spontaneous
  Country: US (occurrence: US)
  Receive Date: 20200707
  Receipt Date: 20200709
  Transmission Date: 20201103
  Serious: Yes (Hospitalization, Other)
  Sender: FDA-Public Use
  Company Number: US-PFIZER INC-2020259605

PATIENT
  Age: 13 Year
  Sex: Male
  Weight: 49 kg

DRUGS (3)
  1. R?GENE [Suspect]
     Active Substance: ARGININE HYDROCHLORIDE
     Indication: SOMATOTROPIN STIMULATION TEST
     Dosage: 24.5 GRAMS / 245 MLS IV AT A RATE OF 490 MLS/HOUR OVER THIRTY MINUTES
     Route: 042
     Dates: start: 20200706
  2. LEXAPRO [Concomitant]
     Active Substance: ESCITALOPRAM OXALATE
     Indication: ANXIETY
     Dosage: 10 MG, 1X/DAY
     Route: 048
  3. CLONIDINE. [Concomitant]
     Active Substance: CLONIDINE
     Indication: SOMATOTROPIN STIMULATION TEST
     Dosage: 2.5 MG, SINGLE
     Route: 048
     Dates: start: 20200706

REACTIONS (10)
  - Metabolic acidosis [Unknown]
  - Drug hypersensitivity [Recovered/Resolved]
  - Cough [Recovered/Resolved]
  - Painful respiration [Recovered/Resolved]
  - Chest pain [Recovered/Resolved]
  - Hyperkalaemia [Unknown]
  - Dyspnoea [Recovered/Resolved]
  - Bronchospasm [Recovered/Resolved]
  - Flushing [Recovered/Resolved]
  - Nasal congestion [Recovered/Resolved]

NARRATIVE: CASE EVENT DATE: 20200706
